FAERS Safety Report 8588384-4 (Version None)
Quarter: 2012Q3

REPORT INFORMATION
  Report Type: 
  Country: None (occurrence: None)
  Receive Date: 20120813
  Receipt Date: 20120803
  Transmission Date: 20120928
  Serious: Yes (Hospitalization)
  Sender: FDA-Public Use
  Company Number: ZA-SANOFI-AVENTIS-2012SA055601

PATIENT
  Age: 47 Year
  Sex: Female

DRUGS (14)
  1. SOLOSTAR [Suspect]
     Indication: DEVICE THERAPY
     Dates: start: 20090101
  2. NEXIUM [Concomitant]
     Indication: GASTROOESOPHAGEAL REFLUX DISEASE
     Route: 048
  3. LIPITOR [Concomitant]
     Route: 048
  4. LANTUS [Suspect]
     Indication: TYPE 2 DIABETES MELLITUS
     Dosage: DOSE:52 UNIT(S)
     Route: 058
     Dates: start: 20090101
  5. CORONARY VASODILATORS [Concomitant]
     Route: 048
  6. LASIX [Concomitant]
     Route: 048
  7. PLENISH-K [Concomitant]
     Route: 048
  8. LOSARTAN POTASSIUM [Concomitant]
     Indication: HYPERTENSION
     Route: 048
  9. PURICOS [Concomitant]
     Indication: GOUT
     Route: 048
  10. SOLOSTAR [Suspect]
     Dates: start: 20090101
  11. APIDRA SOLOSTAR [Suspect]
     Indication: TYPE 2 DIABETES MELLITUS
     Dosage: DOSE:36 UNIT(S)
     Route: 058
     Dates: start: 20090101
  12. CARVEDILOL [Concomitant]
     Route: 048
  13. ADALAT CC [Concomitant]
     Indication: HYPERTENSION
     Route: 048
  14. CARVEDILOL [Concomitant]
     Indication: HYPERTENSION
     Dosage: DOSE: HALF TABLET
     Route: 048

REACTIONS (3)
  - GAIT DISTURBANCE [None]
  - CARDIAC FAILURE [None]
  - COUGH [None]
